FAERS Safety Report 4989951-7 (Version None)
Quarter: 2006Q2

REPORT INFORMATION
  Report Type: 
  Country: None (occurrence: None)
  Receive Date: 20060428
  Receipt Date: 20060417
  Transmission Date: 20061013
  Serious: Yes (Other)
  Sender: FDA-Public Use
  Company Number: 2006BH008240

PATIENT
  Age: 71 Year
  Sex: Female

DRUGS (16)
  1. BREVIBLOC [Suspect]
     Indication: ATRIAL FIBRILLATION
     Dosage: 120 MG;EVERY DAY;IV
     Route: 042
     Dates: start: 20060328, end: 20060328
  2. ATROPINE SULFATE [Concomitant]
  3. MIDAZOLAM HCL [Concomitant]
  4. PHENOBARBITAL TAB [Concomitant]
  5. THIOPENTAL SODIUM [Concomitant]
  6. FENTANYL CITRATE [Concomitant]
  7. SEVOFLURANE [Concomitant]
  8. VECURONIUM BROMIDE [Concomitant]
  9. EPHEDRINE HYDROCHLORIDE [Concomitant]
  10. DOPAMINE HCL [Concomitant]
  11. CALCIUM CHLORIDE [Concomitant]
  12. NICARDIPINE HYDROCHLORIDE [Concomitant]
  13. LANDIOLOL HYDROCHLORIDE [Concomitant]
  14. CEFOTIAM HYDROCHLORIDE [Concomitant]
  15. MANNITOL [Concomitant]
  16. NEOSTIGMINE METHYLSULFATE [Concomitant]

REACTIONS (5)
  - BLOOD PRESSURE DECREASED [None]
  - CEREBRAL INFARCTION [None]
  - HEART RATE DECREASED [None]
  - PROCEDURAL COMPLICATION [None]
  - VASCULAR INJURY [None]
